FAERS Safety Report 19494951 (Version 3)
Quarter: 2022Q1

REPORT INFORMATION
  Report Type: Spontaneous
  Country: US (occurrence: US)
  Receive Date: 20210705
  Receipt Date: 20220201
  Transmission Date: 20220424
  Serious: Yes (Death, Other)
  Sender: FDA-Public Use
  Company Number: US-SA-SAC20210701000717

PATIENT

DRUGS (1)
  1. ZANTAC [Suspect]
     Active Substance: RANITIDINE HYDROCHLORIDE
     Dosage: UNK
     Dates: start: 199610, end: 201910

REACTIONS (2)
  - Gastric cancer [Fatal]
  - Hepatic cancer [Fatal]

NARRATIVE: CASE EVENT DATE: 20200901
